FAERS Safety Report 8985650 (Version 1)
Quarter: 2012Q4

REPORT INFORMATION
  Report Type: 
  Country: US (occurrence: US)
  Receive Date: 20121226
  Receipt Date: 20121226
  Transmission Date: 20130627
  Serious: No
  Sender: FDA-Public Use
  Company Number: US-PFIZER INC-2012326294

PATIENT
  Age: 89 Year
  Sex: Female
  Weight: 58.05 kg

DRUGS (2)
  1. CELEBREX [Suspect]
     Indication: PAIN IN ARM
     Dosage: 100 mg, single
     Dates: start: 20121219, end: 20121219
  2. LEVODOPA-CARBIDOPA [Concomitant]
     Indication: PARKINSON^S DISEASE
     Dosage: 25/100 mg, 3x/day
     Dates: start: 2011

REACTIONS (4)
  - Hypertension [Recovering/Resolving]
  - Restless legs syndrome [Recovering/Resolving]
  - Muscular weakness [Recovering/Resolving]
  - Pain [Recovering/Resolving]
